FAERS Safety Report 4459195-6 (Version None)
Quarter: 2004Q3

REPORT INFORMATION
  Report Type: 
  Country: None (occurrence: None)
  Receive Date: 20040927
  Receipt Date: 20040816
  Transmission Date: 20050211
  Serious: Yes (Other)
  Sender: FDA-Public Use
  Company Number: US-BRISTOL-MYERS SQUIBB COMPANY-12673729

PATIENT
  Age: 63 Year
  Sex: Female

DRUGS (1)
  1. ABILIFY [Suspect]
     Indication: MANIA
     Route: 048
     Dates: start: 20040318, end: 20040803

REACTIONS (4)
  - APHASIA [None]
  - BLOOD ALKALINE PHOSPHATASE INCREASED [None]
  - MUSCULOSKELETAL STIFFNESS [None]
  - PSYCHOMOTOR SKILLS IMPAIRED [None]
